FAERS Safety Report 25421013 (Version 1)
Quarter: 2025Q2

REPORT INFORMATION
  Report Type: Report from Study
  Country: BR (occurrence: BR)
  Receive Date: 20250611
  Receipt Date: 20250611
  Transmission Date: 20250716
  Serious: Yes (Other)
  Sender: EMD SERONO INC
  Company Number: BR-Merck Healthcare KGaA-2025028412

PATIENT
  Age: 36 Year
  Sex: Female

DRUGS (2)
  1. MAVENCLAD [Suspect]
     Active Substance: CLADRIBINE
     Indication: Multiple sclerosis
     Dates: start: 20250430
  2. MECLIN [Concomitant]
     Indication: Product used for unknown indication

REACTIONS (1)
  - Labyrinthitis [Recovering/Resolving]

NARRATIVE: CASE EVENT DATE: 20250530
